FAERS Safety Report 6792048-7 (Version None)
Quarter: 2010Q2

REPORT INFORMATION
  Report Type: 
  Country: None (occurrence: None)
  Receive Date: 20100624
  Receipt Date: 20090115
  Transmission Date: 20101027
  Serious: No
  Sender: FDA-Public Use
  Company Number: US-PFIZER INC-2008059213

PATIENT
  Sex: Female

DRUGS (2)
  1. XALATAN [Suspect]
     Indication: GLAUCOMA
     Dates: start: 20070101
  2. OMEPRAZOLE [Concomitant]

REACTIONS (11)
  - DARK CIRCLES UNDER EYES [None]
  - DYSPNOEA [None]
  - EYE IRRITATION [None]
  - EYELID IRRITATION [None]
  - HEADACHE [None]
  - HYPERSENSITIVITY [None]
  - MALAISE [None]
  - OCULAR HYPERAEMIA [None]
  - PERIORBITAL OEDEMA [None]
  - SKIN LESION [None]
  - WEIGHT DECREASED [None]
